FAERS Safety Report 14813468 (Version 13)
Quarter: 2019Q2

REPORT INFORMATION
  Report Type: Spontaneous
  Country: US (occurrence: US)
  Receive Date: 20180426
  Receipt Date: 20190401
  Transmission Date: 20190711
  Serious: Yes (Hospitalization, Other)
  Sender: FDA-Public Use
  Company Number: US-BRISTOL-MYERS SQUIBB COMPANY-BMS-2018-038606

PATIENT
  Sex: Female
  Weight: 80.73 kg

DRUGS (1)
  1. ORENCIA [Suspect]
     Active Substance: ABATACEPT
     Indication: RHEUMATOID ARTHRITIS
     Dosage: 125 MG, QWK
     Route: 058
     Dates: start: 201804

REACTIONS (8)
  - Musculoskeletal pain [Unknown]
  - Drug ineffective [Unknown]
  - Fall [Unknown]
  - Nasopharyngitis [Unknown]
  - Upper limb fracture [Unknown]
  - Osteoporosis [Unknown]
  - Ill-defined disorder [Unknown]
  - Pain in extremity [Unknown]
